FAERS Safety Report 15827212 (Version 2)
Quarter: 2019Q1

REPORT INFORMATION
  Report Type: Spontaneous
  Country: US (occurrence: US)
  Receive Date: 20190115
  Receipt Date: 20190214
  Transmission Date: 20190417
  Serious: Yes (Hospitalization)
  Sender: FDA-Public Use
  Company Number: US-MALLINCKRODT-T201900018

PATIENT
  Sex: Female
  Weight: 96 kg

DRUGS (1)
  1. H.P. ACTHAR [Suspect]
     Active Substance: CORTICOTROPIN
     Indication: SYSTEMIC LUPUS ERYTHEMATOSUS
     Dosage: 80 UNITS/1ML, TWO TIMES A WEEK, AS DIRECTED
     Route: 058
     Dates: start: 201709

REACTIONS (3)
  - Head discomfort [Unknown]
  - Fall [Unknown]
  - Seizure [Unknown]
